FAERS Safety Report 26136596 (Version 1)
Quarter: 2025Q4

REPORT INFORMATION
  Report Type: Spontaneous
  Country: US (occurrence: None)
  Receive Date: 20251209
  Receipt Date: 20251209
  Transmission Date: 20260118
  Serious: Yes (Other)
  Sender: FDA-CTU
  Company Number: None

PATIENT
  Age: 44 Year
  Sex: Female

DRUGS (3)
  1. PACLITAXEL [Suspect]
     Active Substance: PACLITAXEL
     Dosage: FREQUENCY : DAILY;
  2. LENVIMA [Suspect]
     Active Substance: LENVATINIB
     Dosage: DAILY
  3. LEVOTHYROXINE [Suspect]
     Active Substance: LEVOTHYROXINE

REACTIONS (7)
  - Chest pain [None]
  - Chills [None]
  - Cough [None]
  - Dyspnoea [None]
  - Arthralgia [None]
  - Back disorder [None]
  - Blood pressure increased [None]
